FAERS Safety Report 6861494-5 (Version None)
Quarter: 2010Q3

REPORT INFORMATION
  Report Type: 
  Country: None (occurrence: None)
  Receive Date: 20100720
  Receipt Date: 20100720
  Transmission Date: 20110219
  Serious: Yes (Other)
  Sender: FDA-Public Use
  Company Number: None

PATIENT
  Age: 27 Year
  Sex: Male

DRUGS (3)
  1. LITHIUM CARBONATE [Suspect]
     Indication: SCHIZOAFFECTIVE DISORDER BIPOLAR TYPE
     Dosage: 300 MG AM AND 600 MG HS PO
     Route: 048
     Dates: start: 20100114, end: 20100416
  2. CLOZAPINE [Concomitant]
  3. OMEPRAZOLE [Concomitant]

REACTIONS (3)
  - AUTOIMMUNE THYROIDITIS [None]
  - DRUG INTOLERANCE [None]
  - NEUTROPENIA [None]
